FAERS Safety Report 4266782-7 (Version None)
Quarter: 2004Q1

REPORT INFORMATION
  Report Type: 
  Country: None (occurrence: None)
  Receive Date: 20040108
  Receipt Date: 20030609
  Transmission Date: 20041129
  Serious: No
  Sender: FDA-Public Use
  Company Number: US-BRISTOL-MYERS SQUIBB COMPANY-12297313

PATIENT
  Sex: Male

DRUGS (1)
  1. CARDIOLITE [Suspect]
     Indication: CARDIAC STRESS TEST
     Dosage: ROUTE: INJECTION
     Dates: start: 20030605

REACTIONS (1)
  - URTICARIA [None]
